FAERS Safety Report 22747252 (Version 2)
Quarter: 2023Q4

REPORT INFORMATION
  Report Type: Spontaneous
  Country: SE (occurrence: SE)
  Receive Date: 20230725
  Receipt Date: 20231019
  Transmission Date: 20240110
  Serious: Yes (Other)
  Sender: FDA-Public Use
  Company Number: None

PATIENT
  Age: 36 Year
  Sex: Female
  Weight: 57 kg

DRUGS (4)
  1. DROSPIRENONE [Suspect]
     Active Substance: DROSPIRENONE
     Indication: Leiomyoma
     Dosage: 1 TABLETT OM DAGEN
     Route: 048
     Dates: start: 20230529, end: 20230709
  2. DROSPIRENONE [Suspect]
     Active Substance: DROSPIRENONE
     Indication: Blood test abnormal
  3. DROSPIRENONE [Suspect]
     Active Substance: DROSPIRENONE
     Indication: Contraception
  4. DROSPIRENONE [Suspect]
     Active Substance: DROSPIRENONE
     Indication: Heavy menstrual bleeding

REACTIONS (10)
  - Breast pain [Not Recovered/Not Resolved]
  - Acne [Not Recovered/Not Resolved]
  - Alopecia areata [Recovering/Resolving]
  - Pruritus [Not Recovered/Not Resolved]
  - Fatigue [Not Recovered/Not Resolved]
  - Irritability [Not Recovered/Not Resolved]
  - Patient dissatisfaction with treatment [Not Recovered/Not Resolved]
  - Nausea [Not Recovered/Not Resolved]
  - Depressed mood [Not Recovered/Not Resolved]
  - Vaginal haemorrhage [Recovered/Resolved]

NARRATIVE: CASE EVENT DATE: 20230601
